FAERS Safety Report 10185613 (Version 1)
Quarter: 2014Q2

REPORT INFORMATION
  Report Type: Spontaneous
  Country: US (occurrence: None)
  Receive Date: 20140520
  Receipt Date: 20140520
  Transmission Date: 20141212
  Serious: No
  Sender: FDA-Public Use
  Company Number: None

PATIENT
  Sex: Female

DRUGS (1)
  1. TECFIDERA 240 MG, BIOGEN [Suspect]
     Route: 048

REACTIONS (3)
  - Increased appetite [None]
  - Weight increased [None]
  - Rash [None]
